FAERS Safety Report 14331652 (Version 1)
Quarter: 2017Q4

REPORT INFORMATION
  Report Type: Spontaneous
  Country: FR (occurrence: FR)
  Receive Date: 20171228
  Receipt Date: 20171228
  Transmission Date: 20180321
  Serious: Yes (Hospitalization, Other)
  Sender: FDA-Public Use
  Company Number: FR-MYLANLABS-2017M1082569

PATIENT
  Age: 91 Year
  Sex: Female

DRUGS (11)
  1. METOJECT [Suspect]
     Active Substance: METHOTREXATE SODIUM
     Indication: EMPHYSEMATOUS CYSTITIS
     Route: 042
  2. SPECIAFOLDINE [Concomitant]
     Active Substance: FOLIC ACID
  3. DIFFU K [Concomitant]
     Active Substance: POTASSIUM CHLORIDE
  4. COAPROVEL [Concomitant]
     Active Substance: HYDROCHLOROTHIAZIDE\IRBESARTAN
  5. DUOPLAVIN [Concomitant]
     Active Substance: ASPIRIN\CLOPIDOGREL
  6. DEROXAT [Concomitant]
     Active Substance: PAROXETINE HYDROCHLORIDE
  7. PINAVERIUM [Concomitant]
     Active Substance: PINAVERIUM BROMIDE
  8. PREDNISONE. [Suspect]
     Active Substance: PREDNISONE
     Indication: RHEUMATOID ARTHRITIS
     Route: 048
  9. LAROXYL [Concomitant]
     Active Substance: AMITRIPTYLINE HYDROCHLORIDE
  10. ZYLORIC [Concomitant]
     Active Substance: ALLOPURINOL
  11. ACTISKENAN [Concomitant]
     Active Substance: MORPHINE SULFATE

REACTIONS (1)
  - Emphysematous cystitis [Not Recovered/Not Resolved]

NARRATIVE: CASE EVENT DATE: 20171014
